FAERS Safety Report 7611801-0 (Version None)
Quarter: 2011Q3

REPORT INFORMATION
  Report Type: 
  Country: None (occurrence: None)
  Receive Date: 20110715
  Receipt Date: 20110712
  Transmission Date: 20111222
  Serious: Yes (Other)
  Sender: FDA-Public Use
  Company Number: US-PFIZER INC-2011138643

PATIENT
  Age: 70 Year
  Sex: Female

DRUGS (3)
  1. NEURONTIN [Suspect]
     Indication: NEUROPATHY PERIPHERAL
     Dosage: A DRUG STRENGTH OF 300MG
  2. ELAVIL [Suspect]
     Indication: NEUROPATHY PERIPHERAL
     Dosage: UNK
  3. NORTRIPTYLINE [Suspect]
     Indication: NEUROPATHY PERIPHERAL
     Dosage: UNK

REACTIONS (5)
  - APHONIA [None]
  - URTICARIA [None]
  - LIP SWELLING [None]
  - DRUG INTOLERANCE [None]
  - CONTUSION [None]
